FAERS Safety Report 5147123-X (Version None)
Quarter: 2006Q4

REPORT INFORMATION
  Report Type: 
  Country: None (occurrence: None)
  Receive Date: 20061103
  Receipt Date: 20061023
  Transmission Date: 20070319
  Serious: Yes (Life-Threatening)
  Sender: FDA-Public Use
  Company Number: S06-SAF-04581-01

PATIENT
  Sex: Male

DRUGS (1)
  1. CIPRALEX (ESCITALOPRAM) [Suspect]
     Indication: DEPRESSION
     Dosage: 10 MG QD PO
     Route: 048
     Dates: start: 20060501, end: 20060616

REACTIONS (2)
  - LOSS OF CONSCIOUSNESS [None]
  - ROAD TRAFFIC ACCIDENT [None]
